FAERS Safety Report 13335408 (Version 2)
Quarter: 2018Q1

REPORT INFORMATION
  Report Type: Spontaneous
  Country: US (occurrence: US)
  Receive Date: 20170314
  Receipt Date: 20180307
  Transmission Date: 20180508
  Serious: No
  Sender: FDA-Public Use
  Company Number: US-GALDERMA-US16008342

PATIENT
  Age: 45 Year
  Sex: Female

DRUGS (7)
  1. LEVOTHYROXINE. [Concomitant]
     Active Substance: LEVOTHYROXINE
     Indication: THYROIDECTOMY
     Route: 048
     Dates: start: 200711
  2. VITAMIN D [Concomitant]
     Active Substance: CHOLECALCIFEROL
  3. GLUCOSAMINE CHONDROITIN [Concomitant]
     Active Substance: CHONDROITIN SULFATE (BOVINE)\GLUCOSAMINE HYDROCHLORIDE
  4. TRI-LUMA [Suspect]
     Active Substance: FLUOCINOLONE ACETONIDE\HYDROQUINONE\TRETINOIN
     Indication: SOLAR LENTIGO
     Dosage: 0.01%/4%/0.05%
     Route: 061
     Dates: start: 20160921
  5. BIOTIN [Concomitant]
     Active Substance: BIOTIN
  6. PROBIOTIC [Concomitant]
     Active Substance: PROBIOTICS NOS
  7. MVI [Concomitant]
     Active Substance: VITAMINS

REACTIONS (3)
  - Drug ineffective for unapproved indication [Recovered/Resolved]
  - Erythema [Recovered/Resolved]
  - Intentional product use issue [Recovered/Resolved]

NARRATIVE: CASE EVENT DATE: 20160921
